FAERS Safety Report 5517377-6 (Version None)
Quarter: 2007Q4

REPORT INFORMATION
  Report Type: 
  Country: None (occurrence: None)
  Receive Date: 20071114
  Receipt Date: 20071112
  Transmission Date: 20080405
  Serious: Yes (Disabling)
  Sender: FDA-Public Use
  Company Number: US-MERCK-0711USA01722

PATIENT
  Age: 78 Year
  Sex: Female

DRUGS (2)
  1. EMEND [Suspect]
     Indication: NAUSEA
     Route: 048
  2. OXALIPLATIN [Concomitant]
     Route: 065

REACTIONS (2)
  - NAUSEA [None]
  - TRANSIENT ISCHAEMIC ATTACK [None]
